FAERS Safety Report 22162422 (Version 2)
Quarter: 2024Q1

REPORT INFORMATION
  Report Type: Report from Study
  Country: DE (occurrence: DE)
  Receive Date: 20230331
  Receipt Date: 20240314
  Transmission Date: 20240410
  Serious: Yes (Other)
  Sender: FDA-Public Use
  Company Number: DE-PFM-2023-01850

PATIENT
  Age: 59 Year
  Sex: Male

DRUGS (10)
  1. ENCORAFENIB [Suspect]
     Active Substance: ENCORAFENIB
     Indication: Metastatic malignant melanoma
     Dosage: 450 MG, QD (1/DAY)
     Route: 048
     Dates: start: 20200409, end: 20221215
  2. ENCORAFENIB [Suspect]
     Active Substance: ENCORAFENIB
     Dosage: 300 MG, QD (1/DAY)
     Route: 048
     Dates: start: 20230106, end: 20230316
  3. BINIMETINIB [Suspect]
     Active Substance: BINIMETINIB
     Indication: Metastatic malignant melanoma
     Dosage: 45 MG, BID (2/DAY),ONCE EVERY 12 HOURS
     Route: 048
     Dates: start: 20200409, end: 20230316
  4. RAMIPRIL [Concomitant]
     Active Substance: RAMIPRIL
     Dosage: UNK
     Route: 065
  5. FLUVASTATIN SODIUM [Concomitant]
     Active Substance: FLUVASTATIN SODIUM
     Indication: Prophylaxis
     Dosage: UNK
     Route: 065
  6. PANTOPRAZOLE [Concomitant]
     Active Substance: PANTOPRAZOLE
     Indication: Prophylaxis
     Dosage: UNK
     Route: 065
  7. CLOPIDOGREL [Concomitant]
     Active Substance: CLOPIDOGREL BISULFATE
     Dosage: UNK
     Route: 065
  8. EZETIMIBE [Concomitant]
     Active Substance: EZETIMIBE
     Dosage: UNK
     Route: 065
  9. ASPIRIN [Concomitant]
     Active Substance: ASPIRIN
     Dosage: UNK
     Route: 065
  10. LEVOTHYROXINE [Concomitant]
     Active Substance: LEVOTHYROXINE\LEVOTHYROXINE SODIUM
     Dosage: UNK
     Route: 065

REACTIONS (1)
  - Electrocardiogram QT prolonged [Recovered/Resolved]

NARRATIVE: CASE EVENT DATE: 20221215
